FAERS Safety Report 19762128 (Version 1)
Quarter: 2021Q3

REPORT INFORMATION
  Report Type: Spontaneous
  Country: IT (occurrence: IT)
  Receive Date: 20210829
  Receipt Date: 20210829
  Transmission Date: 20211014
  Serious: Yes (Disabling)
  Sender: FDA-Public Use
  Company Number: None

PATIENT
  Age: 29 Year
  Sex: Female
  Weight: 53 kg

DRUGS (2)
  1. ELOCON [Suspect]
     Active Substance: MOMETASONE FUROATE
     Indication: DERMATITIS ATOPIC
  2. PROTOPIC [Suspect]
     Active Substance: TACROLIMUS
     Indication: DERMATITIS ATOPIC

REACTIONS (10)
  - Lymphadenopathy [None]
  - Insomnia [None]
  - Skin exfoliation [None]
  - Oedema [None]
  - Drug ineffective [None]
  - Erythema [None]
  - Steroid withdrawal syndrome [None]
  - Pruritus [None]
  - Suicidal ideation [None]
  - Nasopharyngitis [None]

NARRATIVE: CASE EVENT DATE: 20190701
